FAERS Safety Report 11526069 (Version 1)
Quarter: 2015Q3

REPORT INFORMATION
  Report Type: Spontaneous
  Country: US (occurrence: US)
  Receive Date: 20150918
  Receipt Date: 20150918
  Transmission Date: 20151125
  Serious: Yes (Other)
  Sender: FDA-Public Use
  Company Number: US-TAKEDA-TPA2012A04632

PATIENT

DRUGS (12)
  1. AMARYL [Concomitant]
     Active Substance: GLIMEPIRIDE
     Dates: start: 19980918, end: 20010714
  2. ACTOS [Suspect]
     Active Substance: PIOGLITAZONE HYDROCHLORIDE
     Dosage: UNK
     Dates: start: 20060417, end: 20060720
  3. DIABETA [Concomitant]
     Active Substance: GLYBURIDE
     Dates: start: 201006, end: 20110205
  4. STARLIX [Concomitant]
     Active Substance: NATEGLINIDE
     Dates: start: 20030815, end: 20040125
  5. STARLIX [Concomitant]
     Active Substance: NATEGLINIDE
  6. ACTOS [Suspect]
     Active Substance: PIOGLITAZONE HYDROCHLORIDE
     Indication: TYPE 2 DIABETES MELLITUS
     Dates: start: 20010727, end: 20031125
  7. STARLIX [Concomitant]
     Active Substance: NATEGLINIDE
     Dates: start: 20060517, end: 20070217
  8. LANTUS [Concomitant]
     Active Substance: INSULIN GLARGINE
     Dates: start: 200604, end: 200606
  9. LANTUS [Concomitant]
     Active Substance: INSULIN GLARGINE
     Dates: start: 201004, end: 201101
  10. GLUCOVANCE [Concomitant]
     Active Substance: GLYBURIDE\METFORMIN HYDROCHLORIDE
     Dates: start: 20010824, end: 20031025
  11. DIABETA [Concomitant]
     Active Substance: GLYBURIDE
     Dates: start: 20090403
  12. GLUCOVANCE [Concomitant]
     Active Substance: GLYBURIDE\METFORMIN HYDROCHLORIDE
     Dates: start: 20060417, end: 20060719

REACTIONS (2)
  - Bladder cancer recurrent [Unknown]
  - Bladder cancer [Unknown]

NARRATIVE: CASE EVENT DATE: 200902
